FAERS Safety Report 20422481 (Version 1)
Quarter: 2022Q1

REPORT INFORMATION
  Report Type: Spontaneous
  Country: US (occurrence: US)
  Receive Date: 20220203
  Receipt Date: 20220203
  Transmission Date: 20220423
  Serious: Yes (Other)
  Sender: FDA-Public Use
  Company Number: US-PURDUE PHARMA-USA-2021-0290078

PATIENT
  Sex: Male

DRUGS (6)
  1. ADHANSIA XR [Suspect]
     Active Substance: METHYLPHENIDATE HYDROCHLORIDE
     Indication: Attention deficit hyperactivity disorder
     Dosage: 340 MG, UNK
     Route: 048
  2. ADHANSIA XR [Suspect]
     Active Substance: METHYLPHENIDATE HYDROCHLORIDE
     Dosage: 85 MG, BID (7 AM AND 12 PM)
     Route: 048
     Dates: start: 2019
  3. ADHANSIA XR [Suspect]
     Active Substance: METHYLPHENIDATE HYDROCHLORIDE
     Dosage: 340 MG, Q4H
     Route: 048
  4. DEXMETHYLPHENIDATE HYDROCHLORIDE [Suspect]
     Active Substance: DEXMETHYLPHENIDATE HYDROCHLORIDE
     Indication: Product used for unknown indication
     Dosage: 50 MG, (TOOK 1 TO 5 TABLETS PRN)
     Route: 048
  5. LOSARTAN AND HYDROCHLOROTHIAZIDE [Concomitant]
     Active Substance: HYDROCHLOROTHIAZIDE\LOSARTAN POTASSIUM
     Indication: Hypertension
     Dosage: 1 TAB/ SOMETIMES SELF DOSES AND TAKES 1/2 TAB, DAILY
     Route: 048
     Dates: start: 2017
  6. ATENOLOL [Concomitant]
     Active Substance: ATENOLOL
     Indication: Hypertension
     Dosage: UNKNOWN
     Route: 048

REACTIONS (9)
  - Major depression [Unknown]
  - Gait inability [Unknown]
  - Blood pressure increased [Unknown]
  - Insomnia [Unknown]
  - Drug ineffective [Unknown]
  - Emotional distress [Unknown]
  - Illness [Unknown]
  - Product administration error [Unknown]
  - Unevaluable event [Unknown]
